FAERS Safety Report 5062418-6 (Version None)
Quarter: 2006Q3

REPORT INFORMATION
  Report Type: 
  Country: None (occurrence: None)
  Receive Date: 20060721
  Receipt Date: 20060719
  Transmission Date: 20061208
  Serious: Yes (Hospitalization)
  Sender: FDA-Public Use
  Company Number: TAP2006Q01215

PATIENT
  Age: 39 Year
  Sex: Female

DRUGS (6)
  1. LUPRON [Suspect]
  2. PANHEMATIN [Suspect]
     Indication: PORPHYRIA ACUTE
     Dosage: 313 MG, EVERY 5-10 DAYS, FOR 24 HOURS, AS NEEDED
     Dates: start: 19950101, end: 20060411
  3. ESTROGENS [Concomitant]
  4. MORPHINE [Concomitant]
  5. PHENERGAN (PROMETHAZINE HYDROCHLORIDE) [Concomitant]
  6. METHADONE HCL [Concomitant]

REACTIONS (4)
  - BLOOD IRON INCREASED [None]
  - CONDITION AGGRAVATED [None]
  - OSTEOPOROSIS [None]
  - PORPHYRIA ACUTE [None]
